FAERS Safety Report 7036150-3 (Version None)
Quarter: 2010Q4

REPORT INFORMATION
  Report Type: 
  Country: None (occurrence: None)
  Receive Date: 20101008
  Receipt Date: 20100402
  Transmission Date: 20110411
  Serious: No
  Sender: FDA-Public Use
  Company Number: US-BRISTOL-MYERS SQUIBB COMPANY-15047293

PATIENT
  Age: 84 Year
  Sex: Male
  Weight: 71 kg

DRUGS (9)
  1. AVAPRO [Suspect]
     Indication: HYPERTENSION
     Route: 048
     Dates: start: 20080801
  2. ATENOLOL [Concomitant]
  3. PREVACID [Concomitant]
  4. DETROL LA [Concomitant]
  5. MULTI-VITAMIN [Concomitant]
  6. LIPOIC ACID [Concomitant]
     Dosage: ALPHA
  7. ASCORBIC ACID [Concomitant]
  8. VITAMIN D [Concomitant]
  9. OMEGA 3 FATTY ACID [Concomitant]

REACTIONS (1)
  - DYSURIA [None]
